FAERS Safety Report 16173277 (Version 1)
Quarter: 2019Q2

REPORT INFORMATION
  Report Type: Spontaneous
  Country: FR (occurrence: FR)
  Receive Date: 20190409
  Receipt Date: 20190409
  Transmission Date: 20190711
  Serious: Yes (Death, Other)
  Sender: FDA-Public Use
  Company Number: FR-LUPIN PHARMACEUTICALS INC.-2019-01970

PATIENT

DRUGS (1)
  1. CEFTRIAXONE INJECTION [Suspect]
     Active Substance: CEFTRIAXONE SODIUM
     Indication: CENTRAL NERVOUS SYSTEM INFECTION
     Dosage: UNK (DAILY DOSAGE OF MORE THAN OR EQUAL TO 75 MG/KG)
     Route: 042

REACTIONS (1)
  - Seizure [Fatal]
